FAERS Safety Report 7965280-4 (Version None)
Quarter: 2011Q4

REPORT INFORMATION
  Report Type: 
  Country: None (occurrence: None)
  Receive Date: 20111208
  Receipt Date: 20111128
  Transmission Date: 20120403
  Serious: Yes (Other)
  Sender: FDA-Public Use
  Company Number: US-BAYER-2011-030142

PATIENT
  Age: 21 Year
  Sex: Female
  Weight: 99.773 kg

DRUGS (2)
  1. YAZ [Suspect]
     Indication: ORAL CONTRACEPTION
     Dosage: UNK
     Dates: start: 20060301, end: 20080501
  2. YASMIN [Suspect]
     Indication: ORAL CONTRACEPTION
     Dosage: UNK
     Dates: start: 20010801, end: 20030601

REACTIONS (7)
  - ANXIETY [None]
  - CHOLELITHIASIS [None]
  - GALLBLADDER PAIN [None]
  - PSYCHOLOGICAL TRAUMA [None]
  - POST CHOLECYSTECTOMY SYNDROME [None]
  - PAIN [None]
  - ANHEDONIA [None]
